FAERS Safety Report 7038304-9 (Version None)
Quarter: 2010Q4

REPORT INFORMATION
  Report Type: 
  Country: None (occurrence: None)
  Receive Date: 20101011
  Receipt Date: 20091103
  Transmission Date: 20110411
  Serious: Yes (Other)
  Sender: FDA-Public Use
  Company Number: US-PFIZER INC-2009293614

PATIENT
  Sex: Female
  Weight: 17.234 kg

DRUGS (3)
  1. NEURONTIN [Suspect]
     Indication: MYELITIS TRANSVERSE
     Dosage: 250 MG, 1X/DAY
     Dates: start: 20070501
  2. ATARAX [Concomitant]
  3. PREDNISONE [Concomitant]

REACTIONS (2)
  - HEPATIC ENZYME INCREASED [None]
  - URINARY INCONTINENCE [None]
